FAERS Safety Report 4833222-6 (Version None)
Quarter: 2005Q4

REPORT INFORMATION
  Report Type: 
  Country: None (occurrence: None)
  Receive Date: 20051121
  Receipt Date: 20051110
  Transmission Date: 20060501
  Serious: Yes (Other)
  Sender: FDA-Public Use
  Company Number: US-JNJFOC-20051103461

PATIENT
  Sex: Male

DRUGS (2)
  1. TOPAMAX [Suspect]
     Indication: ANXIETY
     Dosage: ONE DOSE
     Route: 048
  2. GINKO BILOBA [Concomitant]

REACTIONS (2)
  - CARDIAC DISORDER [None]
  - CHEST PAIN [None]
